FAERS Safety Report 16781620 (Version 1)
Quarter: 2019Q3

REPORT INFORMATION
  Report Type: Spontaneous
  Country: US (occurrence: US)
  Receive Date: 20190906
  Receipt Date: 20190906
  Transmission Date: 20191005
  Serious: Yes (Other)
  Sender: FDA-Public Use
  Company Number: US-IGSA-SR10009044

PATIENT
  Age: 40 Year
  Sex: Male

DRUGS (2)
  1. HUMAN NORMAL IMMUNOGLOBULIN (IV) [Suspect]
     Active Substance: HUMAN IMMUNOGLOBULIN G
     Indication: CASTLEMAN^S DISEASE
     Dosage: UNK UNK, UNKNOWN
     Route: 042
  2. RITUXIMAB. [Concomitant]
     Active Substance: RITUXIMAB
     Indication: CASTLEMAN^S DISEASE

REACTIONS (3)
  - Papule [Recovering/Resolving]
  - Cutaneous lupus erythematosus [Recovering/Resolving]
  - Sunburn [Recovering/Resolving]
